FAERS Safety Report 20689645 (Version 1)
Quarter: 2022Q2

REPORT INFORMATION
  Report Type: Spontaneous
  Country: US (occurrence: US)
  Receive Date: 20220408
  Receipt Date: 20220408
  Transmission Date: 20220721
  Serious: Yes (Other)
  Sender: FDA-Public Use
  Company Number: US-SUN PHARMACEUTICAL INDUSTRIES LTD-2022R1-332054

PATIENT
  Age: 61 Year
  Sex: Male

DRUGS (2)
  1. OCTREOTIDE [Suspect]
     Active Substance: OCTREOTIDE
     Indication: Carcinoid tumour
     Dosage: UNK
     Route: 065
  2. OCTREOTIDE [Suspect]
     Active Substance: OCTREOTIDE
     Indication: Metastases to liver

REACTIONS (1)
  - Disease recurrence [Unknown]
